FAERS Safety Report 7351657-7 (Version None)
Quarter: 2011Q1

REPORT INFORMATION
  Report Type: 
  Country: None (occurrence: None)
  Receive Date: 20110315
  Receipt Date: 20110307
  Transmission Date: 20110831
  Serious: No
  Sender: FDA-Public Use
  Company Number: US-BIOGENIDEC-2011BI008705

PATIENT
  Sex: Female
  Weight: 52 kg

DRUGS (3)
  1. TYSABRI [Suspect]
     Indication: MULTIPLE SCLEROSIS
     Route: 042
     Dates: start: 20101201
  2. BACLOFEN [Concomitant]
     Indication: MUSCLE SPASMS
     Dates: start: 20090201
  3. LEXAPRO [Concomitant]
     Indication: DEPRESSION
     Dates: start: 20040101

REACTIONS (4)
  - DEPRESSION [None]
  - VEIN DISORDER [None]
  - MUSCLE SPASMS [None]
  - NASOPHARYNGITIS [None]
